FAERS Safety Report 18067471 (Version 1)
Quarter: 2020Q3

REPORT INFORMATION
  Report Type: Report from Study
  Country: None (occurrence: IT)
  Receive Date: 20200724
  Receipt Date: 20200724
  Transmission Date: 20201103
  Serious: Yes (Other)
  Sender: FDA-Public Use
  Company Number: IT-ABBVIE-20K-083-3424377-00

PATIENT
  Age: 61 Year
  Sex: Female

DRUGS (2)
  1. DUODOPA [Suspect]
     Active Substance: CARBIDOPA\LEVODOPA
     Dosage: MD: 5,8+3?CR: 2,8 (15H),?ED: 1,8
     Route: 050
  2. DUODOPA [Suspect]
     Active Substance: CARBIDOPA\LEVODOPA
     Indication: PARKINSON^S DISEASE
     Dosage: MD: 5,8+3??CR: 2,8 (15H),??ED: 2,5
     Route: 050
     Dates: start: 20190806

REACTIONS (4)
  - Syncope [Unknown]
  - Cardiac pacemaker insertion [Unknown]
  - Skin laceration [Unknown]
  - Contusion [Unknown]

NARRATIVE: CASE EVENT DATE: 202004
